FAERS Safety Report 13268847 (Version 1)
Quarter: 2017Q1

REPORT INFORMATION
  Report Type: Spontaneous
  Country: US (occurrence: US)
  Receive Date: 20170224
  Receipt Date: 20170224
  Transmission Date: 20170428
  Serious: Yes (Hospitalization, Other)
  Sender: FDA-Public Use
  Company Number: US-JAZZ-2017-US-002335

PATIENT
  Age: 38 Year
  Sex: Male

DRUGS (1)
  1. XYREM [Suspect]
     Active Substance: SODIUM OXYBATE
     Indication: PRODUCT USED FOR UNKNOWN INDICATION
     Route: 048

REACTIONS (13)
  - Blood creatine phosphokinase increased [Recovered/Resolved]
  - Agitation [Recovered/Resolved]
  - Irritability [Recovered/Resolved]
  - Somnolence [Recovered/Resolved]
  - Suicide attempt [Unknown]
  - Conduction disorder [Recovered/Resolved]
  - Hyperventilation [Recovered/Resolved]
  - Tachypnoea [Recovered/Resolved]
  - Electrolyte imbalance [Recovered/Resolved]
  - Lethargy [Recovered/Resolved]
  - Electrocardiogram abnormal [Recovered/Resolved]
  - Bradycardia [Recovered/Resolved]
  - Ataxia [Recovered/Resolved]
